FAERS Safety Report 7816911-0 (Version None)
Quarter: 2011Q4

REPORT INFORMATION
  Report Type: 
  Country: None (occurrence: None)
  Receive Date: 20111017
  Receipt Date: 20111003
  Transmission Date: 20120403
  Serious: Yes (Hospitalization)
  Sender: FDA-Public Use
  Company Number: US-BAYER-201038547NA

PATIENT
  Age: 33 Year
  Sex: Female
  Weight: 76 kg

DRUGS (3)
  1. FOLIC ACID [Concomitant]
     Dosage: UNK
     Dates: start: 20040601
  2. YASMIN [Suspect]
     Dosage: UNK UNK, QD
     Route: 048
     Dates: start: 20030601, end: 20040101
  3. PREVACID [Concomitant]
     Dosage: UNK
     Dates: start: 20040601

REACTIONS (9)
  - OEDEMA [None]
  - DEPRESSION [None]
  - PULMONARY EMBOLISM [None]
  - ANXIETY [None]
  - PANIC ATTACK [None]
  - INFERTILITY [None]
  - CHEST PAIN [None]
  - ENDOMETRIOSIS [None]
  - DYSPNOEA [None]
